FAERS Safety Report 5564147-9 (Version None)
Quarter: 2007Q4

REPORT INFORMATION
  Report Type: 
  Country: None (occurrence: None)
  Receive Date: 20071217
  Receipt Date: 20071205
  Transmission Date: 20080405
  Serious: Yes (Hospitalization, Other)
  Sender: FDA-Public Use
  Company Number: IL-PFIZER INC-2007103473

PATIENT
  Sex: Male

DRUGS (3)
  1. SU-011,248 [Suspect]
     Indication: METASTATIC RENAL CELL CARCINOMA
     Route: 048
  2. L-THYROXIN [Concomitant]
     Route: 048
  3. ACETAMINOPHEN AND OXYCODONE HCL [Concomitant]
     Route: 048

REACTIONS (1)
  - ILEUS [None]
